FAERS Safety Report 7910796-X (Version None)
Quarter: 2011Q4

REPORT INFORMATION
  Report Type: 
  Country: None (occurrence: None)
  Receive Date: 20111113
  Receipt Date: 20111103
  Transmission Date: 20120403
  Serious: No
  Sender: FDA-Public Use
  Company Number: US-B.I. PHARMACEUTICALS,INC./RIDGEFIELD-2011-BP-25530BP

PATIENT
  Sex: Female

DRUGS (6)
  1. SINGULAIR [Concomitant]
  2. ADVAIR DISKUS 100/50 [Concomitant]
  3. SPIRIVA [Suspect]
     Indication: CHRONIC OBSTRUCTIVE PULMONARY DISEASE
     Dosage: 18 MCG
     Route: 055
     Dates: start: 20091101
  4. CLARITIN [Concomitant]
  5. XOPENEX [Concomitant]
     Dosage: 45 MCG
  6. PREMARIN [Concomitant]

REACTIONS (3)
  - NEPHROLITHIASIS [None]
  - FOOT FRACTURE [None]
  - BRONCHITIS [None]
